FAERS Safety Report 9788026 (Version 1)
Quarter: 2013Q4

REPORT INFORMATION
  Report Type: Spontaneous
  Country: US (occurrence: None)
  Receive Date: 20131227
  Receipt Date: 20131227
  Transmission Date: 20140711
  Serious: Yes (Other)
  Sender: FDA-Public Use
  Company Number: None

PATIENT
  Age: 51 Year
  Sex: Male
  Weight: 96 kg

DRUGS (2)
  1. LINEZOLID [Suspect]
     Indication: ENDOCARDITIS
     Route: 042
     Dates: start: 20131105, end: 20131115
  2. LINEZOLID [Suspect]
     Indication: ENDOCARDITIS
     Route: 048
     Dates: start: 20131115, end: 20131216

REACTIONS (1)
  - Platelet count decreased [None]
